FAERS Safety Report 17233426 (Version 2)
Quarter: 2020Q4

REPORT INFORMATION
  Report Type: Spontaneous
  Country: DE (occurrence: DE)
  Receive Date: 20200104
  Receipt Date: 20201117
  Transmission Date: 20210113
  Serious: Yes (Hospitalization, Other)
  Sender: FDA-Public Use
  Company Number: DE-ACCORD-168143

PATIENT
  Age: 36 Year
  Sex: Female

DRUGS (5)
  1. MILNACIPRAN/MILNACIPRAN HYDROCHLORIDE [Concomitant]
     Active Substance: MILNACIPRAN\MILNACIPRAN HYDROCHLORIDE
     Indication: MAJOR DEPRESSION
     Dosage: 50-25-0 MG
     Dates: start: 20190328
  2. SERTRALINE [Suspect]
     Active Substance: SERTRALINE HYDROCHLORIDE
     Indication: PRODUCT USED FOR UNKNOWN INDICATION
     Dates: start: 20190328
  3. MILNACIPRAN [Concomitant]
     Active Substance: MILNACIPRAN
     Dosage: 50 MG-0-0
     Dates: start: 20190114, end: 20190327
  4. SERTRALINE [Suspect]
     Active Substance: SERTRALINE HYDROCHLORIDE
     Indication: MAJOR DEPRESSION
     Dosage: 100 MG-0-0 REDUCED
     Dates: start: 20190114, end: 20190117
  5. SERTRALINE [Suspect]
     Active Substance: SERTRALINE HYDROCHLORIDE
     Indication: PRODUCT USED FOR UNKNOWN INDICATION
     Dates: start: 20190117, end: 20190327

REACTIONS (3)
  - Stress [Recovered/Resolved]
  - Persistent genital arousal disorder [Recovered/Resolved]
  - Withdrawal syndrome [Recovered/Resolved]

NARRATIVE: CASE EVENT DATE: 2019
